FAERS Safety Report 8288294-6 (Version None)
Quarter: 2012Q2

REPORT INFORMATION
  Report Type: 
  Country: None (occurrence: None)
  Receive Date: 20120416
  Receipt Date: 20120413
  Transmission Date: 20120825
  Serious: Yes (Death)
  Sender: FDA-Public Use
  Company Number: PHHY2012DE023391

PATIENT
  Age: 20 Year
  Sex: Female

DRUGS (3)
  1. POTASSIUM IODIDE [Suspect]
  2. MINOCYCLINE HCL [Suspect]
  3. BISOPROLOL [Concomitant]
     Indication: ARRHYTHMIA

REACTIONS (2)
  - THYROID DISORDER [None]
  - ARRHYTHMIA [None]
